FAERS Safety Report 9223753 (Version 2)
Quarter: 2013Q2

REPORT INFORMATION
  Report Type: Spontaneous
  Country: DE (occurrence: DE)
  Receive Date: 20130410
  Receipt Date: 20130430
  Transmission Date: 20140414
  Serious: Yes (Hospitalization, Other)
  Sender: FDA-Public Use
  Company Number: DE-TEVA-394961GER

PATIENT
  Age: 20 Year
  Sex: Female

DRUGS (1)
  1. LAYAISA [Suspect]
     Indication: ORAL CONTRACEPTION
     Dosage: 1 DF= 0.02 MG ETHINYLESTRADIOL PLUS 3 MG DROSPIRENON
     Route: 048
     Dates: start: 201212, end: 201303

REACTIONS (4)
  - Electrocardiogram QT prolonged [Recovered/Resolved]
  - Syncope [Recovered/Resolved]
  - Arrhythmia [Recovered/Resolved]
  - Tachycardia [Recovered/Resolved]
